FAERS Safety Report 7685395-8 (Version None)
Quarter: 2011Q3

REPORT INFORMATION
  Report Type: 
  Country: None (occurrence: None)
  Receive Date: 20110816
  Receipt Date: 20100911
  Transmission Date: 20111222
  Serious: No
  Sender: FDA-Public Use
  Company Number: US-BAYER-201036217NA

PATIENT
  Age: 17 Year
  Sex: Female

DRUGS (3)
  1. ZOLOFT [Concomitant]
  2. MIRENA [Suspect]
     Indication: CONTRACEPTION
     Dosage: 20 ?G/D, CONT
     Route: 015
     Dates: start: 20080701
  3. ABILIFY [Concomitant]

REACTIONS (2)
  - FUNGAL INFECTION [None]
  - WEIGHT INCREASED [None]
